FAERS Safety Report 6461336-6 (Version None)
Quarter: 2009Q4

REPORT INFORMATION
  Report Type: 
  Country: None (occurrence: None)
  Receive Date: 20091130
  Receipt Date: 20091120
  Transmission Date: 20100525
  Serious: Yes (Death, Hospitalization, Other)
  Sender: FDA-Public Use
  Company Number: AU-NOVOPROD-300960

PATIENT
  Age: 15 Year
  Sex: Female
  Weight: 83 kg

DRUGS (7)
  1. NOVOSEVEN [Suspect]
     Indication: HAEMORRHAGE
     Dosage: 6.60 MG, QD
     Dates: start: 20060702, end: 20060702
  2. HEPARIN [Concomitant]
     Dosage: UNK
     Dates: start: 20060702
  3. VITAMIN K TAB [Concomitant]
  4. ALBUMEX 20 [Concomitant]
  5. PLASMA [Concomitant]
     Dosage: 11.8 UNK, UNK
  6. CRYOPRECIPITATES [Concomitant]
     Dosage: 40 UNK, UNK
  7. PLATELETS [Concomitant]
     Dosage: 4 UNK, UNK

REACTIONS (1)
  - ARRHYTHMIA [None]
